FAERS Safety Report 17491419 (Version 1)
Quarter: 2020Q1

REPORT INFORMATION
  Report Type: Spontaneous
  Country: CH (occurrence: CH)
  Receive Date: 20200304
  Receipt Date: 20200304
  Transmission Date: 20200409
  Serious: Yes (Hospitalization, Other)
  Sender: FDA-Public Use
  Company Number: CH-CHEPLA-C20200734

PATIENT
  Age: 69 Year
  Sex: Male
  Weight: 71.9 kg

DRUGS (12)
  1. NIFEDIPINE. [Concomitant]
     Active Substance: NIFEDIPINE
     Indication: HYPERTENSION
     Route: 048
  2. AKYNZEO [Concomitant]
     Active Substance: NETUPITANT\PALONOSETRON HYDROCHLORIDE
     Dosage: 3X/JOUR EN RESERVE ; AS NECESSARY
     Route: 048
  3. PANTOPRAZOLE [Concomitant]
     Active Substance: PANTOPRAZOLE
     Dosage: AS NECESSARY
     Route: 048
  4. XGEVA [Concomitant]
     Active Substance: DENOSUMAB
     Route: 048
  5. MST [Concomitant]
     Indication: PAIN
     Route: 048
  6. SEVREDOL [Concomitant]
     Active Substance: MORPHINE
     Dosage: 10 MG 3X/J EN RESERVE ; AS NECESSARY
     Route: 048
  7. ACIDE FOLIQUE [Concomitant]
     Active Substance: FOLIC ACID
     Route: 048
  8. ETOPOPHOS [Suspect]
     Active Substance: ETOPOSIDE PHOSPHATE
     Indication: SMALL CELL LUNG CANCER
     Dosage: 190 MG ON 20.12.19 AND 14.01.20
     Route: 041
     Dates: start: 20191220
  9. CARBOPLATIN. [Suspect]
     Active Substance: CARBOPLATIN
     Indication: SMALL CELL LUNG CANCER
     Dosage: 370 MG ON 20.12.19 AND 490 MG ON 14.01.20
     Route: 042
     Dates: start: 20191220, end: 20200114
  10. TECENTRIQ [Suspect]
     Active Substance: ATEZOLIZUMAB
     Indication: SMALL CELL LUNG CANCER
     Dosage: 1200 MG ON 20.12.19 AND 14.01.20
     Route: 042
     Dates: start: 20191220
  11. CALCIMAGON D3 FORTE [Concomitant]
     Route: 048
  12. DAFALGAN [Concomitant]
     Active Substance: ACETAMINOPHEN
     Route: 048

REACTIONS (4)
  - Normochromic normocytic anaemia [Unknown]
  - Renal tubular dysfunction [Recovering/Resolving]
  - Chills [Unknown]
  - Tubulointerstitial nephritis [Recovering/Resolving]

NARRATIVE: CASE EVENT DATE: 20200130
